FAERS Safety Report 8545506-9 (Version None)
Quarter: 2012Q3

REPORT INFORMATION
  Report Type: 
  Country: None (occurrence: None)
  Receive Date: 20120727
  Receipt Date: 20111028
  Transmission Date: 20120928
  Serious: No
  Sender: FDA-Public Use
  Company Number: US-ASTRAZENECA-2011SE65514

PATIENT
  Age: 50 Year
  Sex: Male

DRUGS (9)
  1. SEROQUEL [Suspect]
     Route: 048
     Dates: start: 20101201
  2. SEROQUEL [Suspect]
     Route: 048
     Dates: start: 20101201
  3. SYNTHROID [Concomitant]
  4. SEROQUEL [Suspect]
     Dosage: 2 TABLETS
     Route: 048
  5. DEPAKOTE [Concomitant]
  6. SEROQUEL [Suspect]
     Indication: SLEEP DISORDER
     Route: 048
  7. LIPITOR [Concomitant]
  8. SEROQUEL [Suspect]
     Indication: BIPOLAR I DISORDER
     Route: 048
  9. SEROQUEL [Suspect]
     Dosage: 2 TABLETS
     Route: 048

REACTIONS (7)
  - ANXIETY [None]
  - ABNORMAL DREAMS [None]
  - INSOMNIA [None]
  - OFF LABEL USE [None]
  - OBSESSIVE-COMPULSIVE DISORDER [None]
  - PSYCHOMOTOR HYPERACTIVITY [None]
  - LOGORRHOEA [None]
